FAERS Safety Report 9774615 (Version 2)
Quarter: 2013Q4

REPORT INFORMATION
  Report Type: Spontaneous
  Country: US (occurrence: US)
  Receive Date: 20131220
  Receipt Date: 20131227
  Transmission Date: 20140711
  Serious: Yes (Other)
  Sender: FDA-Public Use
  Company Number: US-MERCK-1312USA009447

PATIENT
  Age: 79 Year
  Sex: Male

DRUGS (2)
  1. TIMOPTIC XE [Suspect]
     Indication: GLAUCOMA
     Dosage: 1 DROP INTO BOTH EYES, EACH MORNING
     Route: 047
     Dates: start: 20130208
  2. ALLOPURINOL [Concomitant]
     Indication: PRODUCT USED FOR UNKNOWN INDICATION

REACTIONS (6)
  - Hallucination [Not Recovered/Not Resolved]
  - Disorientation [Not Recovered/Not Resolved]
  - Depression [Not Recovered/Not Resolved]
  - Dementia [Not Recovered/Not Resolved]
  - Anxiety [Not Recovered/Not Resolved]
  - Nervousness [Not Recovered/Not Resolved]
